FAERS Safety Report 7321223-8 (Version None)
Quarter: 2011Q1

REPORT INFORMATION
  Report Type: 
  Country: None (occurrence: None)
  Receive Date: 20110223
  Receipt Date: 20110223
  Transmission Date: 20110831
  Serious: Yes (Other)
  Sender: FDA-Public Use
  Company Number: None

PATIENT
  Age: 36 Year
  Sex: Male
  Weight: 91.173 kg

DRUGS (1)
  1. HEPARIN SODIUM [Suspect]
     Indication: CEREBROVASCULAR ACCIDENT
     Dosage: 10 UNITS/KG/HR INITIAL RATE CONTINUOUS IV DRIP; 3000 UNITS X1 IV BOLUS
     Dates: start: 20110218, end: 20110219

REACTIONS (2)
  - ACTIVATED PARTIAL THROMBOPLASTIN TIME ABNORMAL [None]
  - PRODUCT MEASURED POTENCY ISSUE [None]
